FAERS Safety Report 5191470-2 (Version None)
Quarter: 2006Q4

REPORT INFORMATION
  Report Type: 
  Country: None (occurrence: None)
  Receive Date: 20061218
  Receipt Date: 20061211
  Transmission Date: 20070319
  Serious: Yes (Other)
  Sender: FDA-Public Use
  Company Number: HQWYE008213DEC06

PATIENT
  Age: 26 Year
  Sex: Female

DRUGS (2)
  1. PREMARIN [Suspect]
     Indication: OVARIAN FAILURE
     Dosage: 1.25MG; SEE IMAGE
  2. PROVERA [Suspect]
     Indication: PUBERTY
     Dosage: MONTHLY SEVEN DAY COURSE OF 10MG

REACTIONS (2)
  - BONE MARROW TRANSPLANT [None]
  - UTERINE LEIOMYOMA [None]
